FAERS Safety Report 17242308 (Version 1)
Quarter: 2020Q1

REPORT INFORMATION
  Report Type: Report from Study
  Country: CA (occurrence: CA)
  Receive Date: 20200107
  Receipt Date: 20200107
  Transmission Date: 20200409
  Serious: Yes (Death, Hospitalization, Other)
  Sender: FDA-Public Use
  Company Number: PHHY2019CA005756

PATIENT
  Age: 72 Year
  Sex: Male

DRUGS (2)
  1. SANDOSTATIN LAR DEPOT [Suspect]
     Active Substance: OCTREOTIDE ACETATE
     Indication: CARCINOID TUMOUR
     Dosage: 30 MG, QMO (EVERY 4 WEEKS)
     Route: 030
     Dates: start: 20161104, end: 20191218
  2. SANDOSTATIN [Suspect]
     Active Substance: OCTREOTIDE ACETATE
     Indication: CARCINOID TUMOUR
     Dosage: UNK
     Route: 058
     Dates: start: 2016, end: 2016

REACTIONS (15)
  - Death [Fatal]
  - Weight increased [Unknown]
  - Hypotension [Unknown]
  - Heart rate decreased [Unknown]
  - Blood glucose decreased [Recovering/Resolving]
  - Injection site pain [Recovered/Resolved]
  - Neoplasm malignant [Unknown]
  - Tremor [Unknown]
  - Blood pressure increased [Unknown]
  - Arterial occlusive disease [Unknown]
  - Jaundice [Unknown]
  - Pain [Unknown]
  - Fatigue [Unknown]
  - Blood glucose increased [Recovering/Resolving]
  - Weight decreased [Recovering/Resolving]

NARRATIVE: CASE EVENT DATE: 20181211
